FAERS Safety Report 15243077 (Version 2)
Quarter: 2018Q4

REPORT INFORMATION
  Report Type: Spontaneous
  Country: US (occurrence: US)
  Receive Date: 20180806
  Receipt Date: 20181128
  Transmission Date: 20190204
  Serious: Yes (Other)
  Sender: FDA-Public Use
  Company Number: US-SA-2018SA172388

PATIENT
  Age: 60 Year
  Sex: Female

DRUGS (23)
  1. HUMIRA [Suspect]
     Active Substance: ADALIMUMAB
     Indication: PSORIATIC ARTHROPATHY
     Dosage: UNK UNK, UNK
     Route: 058
  2. NORCO [Concomitant]
     Active Substance: ACETAMINOPHEN\HYDROCODONE BITARTRATE
     Dosage: UNK
  3. TRICOR [ADENOSINE] [Concomitant]
     Dosage: UNK
  4. LEFLUNOMIDE. [Suspect]
     Active Substance: LEFLUNOMIDE
     Dosage: UNK UNK, UNK
     Route: 065
  5. AMBIEN CR [Concomitant]
     Active Substance: ZOLPIDEM TARTRATE
     Dosage: UNK
  6. CYCLOSPORINE. [Suspect]
     Active Substance: CYCLOSPORINE
     Dosage: UNK UNK, UNK
     Route: 065
  7. OTEZLA [Suspect]
     Active Substance: APREMILAST
     Indication: PSORIASIS
     Dosage: 30 MG, BID
     Route: 048
  8. PROAIR [SALBUTAMOL SULFATE] [Concomitant]
  9. DULERA [Concomitant]
     Active Substance: FORMOTEROL FUMARATE DIHYDRATE\MOMETASONE FUROATE
     Dosage: UNK
  10. CLARITIN [GLICLAZIDE] [Concomitant]
     Dosage: UNK
  11. CIMZIA [Suspect]
     Active Substance: CERTOLIZUMAB PEGOL
     Dosage: UNK UNK, UNK
     Route: 065
  12. STELARA [Suspect]
     Active Substance: USTEKINUMAB
     Dosage: UNK UNK, UNK
     Route: 065
     Dates: start: 201405, end: 201508
  13. COSENTYX [Suspect]
     Active Substance: SECUKINUMAB
     Dosage: 1 UNK, QM
     Route: 058
  14. EXCEDRIN [Concomitant]
     Active Substance: ACETAMINOPHEN\ASPIRIN\CAFFEINE
  15. VITAMIN D3 [Concomitant]
     Active Substance: CHOLECALCIFEROL
     Dosage: UNK
  16. XELJANZ XR [Concomitant]
     Active Substance: TOFACITINIB CITRATE
     Dosage: UNK
  17. ENBREL [Suspect]
     Active Substance: ETANERCEPT
     Indication: PSORIATIC ARTHROPATHY
     Dosage: UNK UNK, UNK
     Route: 065
  18. REMICADE [Suspect]
     Active Substance: INFLIXIMAB
     Dosage: UNK UNK, UNK
     Route: 065
  19. METHOTREXATE. [Suspect]
     Active Substance: METHOTREXATE
     Dosage: UNK UNK, UNK
     Route: 065
  20. NYSTATIN. [Concomitant]
     Active Substance: NYSTATIN
     Dosage: UNK
  21. FLONASE [MOMETASONE FUROATE] [Concomitant]
     Dosage: UNK
  22. ATENOLOL. [Concomitant]
     Active Substance: ATENOLOL
     Dosage: UNK
  23. TRAMADOL. [Concomitant]
     Active Substance: TRAMADOL
     Dosage: UNK

REACTIONS (21)
  - Psoriatic arthropathy [Not Recovered/Not Resolved]
  - Mobility decreased [Unknown]
  - Loss of personal independence in daily activities [Unknown]
  - Drug ineffective [Unknown]
  - Feeling hot [Unknown]
  - Anxiety [Not Recovered/Not Resolved]
  - Insomnia [Unknown]
  - Essential hypertension [Unknown]
  - Liver function test increased [Unknown]
  - Gait disturbance [Unknown]
  - Rheumatoid arthritis [Unknown]
  - C-reactive protein increased [Unknown]
  - Malaise [Unknown]
  - Hyperuricaemia [Unknown]
  - Depressed mood [Unknown]
  - Gout [Unknown]
  - Asthma [Unknown]
  - Depression [Not Recovered/Not Resolved]
  - Sinusitis [Unknown]
  - Vitamin D deficiency [Unknown]
  - Psoriasis [Not Recovered/Not Resolved]
